FAERS Safety Report 6968556-2 (Version None)
Quarter: 2010Q3

REPORT INFORMATION
  Report Type: 
  Country: None (occurrence: None)
  Receive Date: 20100907
  Receipt Date: 20100830
  Transmission Date: 20110219
  Serious: Yes (Other)
  Sender: FDA-Public Use
  Company Number: US-GENENTECH-303067

PATIENT
  Sex: Female
  Weight: 74.83 kg

DRUGS (1)
  1. XOLAIR [Suspect]
     Indication: ASTHMA
     Dosage: 300 MG, 1/MONTH
     Route: 058
     Dates: start: 20090923, end: 20100319

REACTIONS (2)
  - INJECTION SITE HAEMATOMA [None]
  - URTICARIA [None]
